FAERS Safety Report 17500600 (Version 1)
Quarter: 2020Q1

REPORT INFORMATION
  Report Type: Spontaneous
  Country: GB (occurrence: GB)
  Receive Date: 20200305
  Receipt Date: 20200305
  Transmission Date: 20200409
  Serious: Yes (Other)
  Sender: FDA-Public Use
  Company Number: GB-TEVA-2020-GB-1194555

PATIENT
  Age: 68 Year
  Sex: Female
  Weight: 67.12 kg

DRUGS (1)
  1. SALAMOL [Suspect]
     Active Substance: ALBUTEROL
     Indication: ASTHMA
     Dosage: PUFFS 8 DOSAGE FORMS
     Route: 055
     Dates: start: 20200119, end: 20200126

REACTIONS (1)
  - Haemoptysis [Recovered/Resolved]

NARRATIVE: CASE EVENT DATE: 20200120
